FAERS Safety Report 8356898-8 (Version None)
Quarter: 2012Q2

REPORT INFORMATION
  Report Type: 
  Country: None (occurrence: None)
  Receive Date: 20120514
  Receipt Date: 20120504
  Transmission Date: 20120825
  Serious: No
  Sender: FDA-Public Use
  Company Number: US-ROXANE LABORATORIES, INC.-2012-RO-01194RO

PATIENT

DRUGS (1)
  1. LOSARTAN POTASSIUM [Suspect]
     Dosage: 25 MG
     Route: 048
     Dates: start: 20120329

REACTIONS (2)
  - BLOOD PRESSURE INCREASED [None]
  - DIZZINESS [None]
